FAERS Safety Report 5175056-1 (Version None)
Quarter: 2006Q4

REPORT INFORMATION
  Report Type: 
  Country: None (occurrence: None)
  Receive Date: 20061214
  Receipt Date: 20060527
  Transmission Date: 20070319
  Serious: No
  Sender: FDA-Public Use
  Company Number: US-AMGEN-KDL181054

PATIENT
  Sex: Female

DRUGS (1)
  1. ENBREL [Suspect]
     Indication: RHEUMATOID ARTHRITIS
     Route: 058
     Dates: start: 20010701

REACTIONS (8)
  - BONE PAIN [None]
  - CONDITION AGGRAVATED [None]
  - GAIT DISTURBANCE [None]
  - HEADACHE [None]
  - JOINT SWELLING [None]
  - NECK PAIN [None]
  - OEDEMA PERIPHERAL [None]
  - STOMACH DISCOMFORT [None]
